FAERS Safety Report 19960159 (Version 3)
Quarter: 2022Q1

REPORT INFORMATION
  Report Type: Report from Study
  Country: US (occurrence: US)
  Receive Date: 20211015
  Receipt Date: 20220122
  Transmission Date: 20220423
  Serious: Yes (Life-Threatening, Hospitalization, Other)
  Sender: FDA-Public Use
  Company Number: US-AMGEN-USACT2021065843

PATIENT
  Age: 71 Year
  Sex: Male
  Weight: 111.3 kg

DRUGS (3)
  1. BLINATUMOMAB [Suspect]
     Active Substance: BLINATUMOMAB
     Indication: B precursor type acute leukaemia
     Dosage: 9 MICROGRAM, QD (TOTAL DOSE: 1169 MCG)
     Route: 042
     Dates: start: 20201228
  2. BLINATUMOMAB [Suspect]
     Active Substance: BLINATUMOMAB
     Dosage: 28 MICROGRAM, QD (TOTAL DOSE: 1169 MCG)
     Route: 042
     Dates: end: 20210318
  3. INOTUZUMAB OZOGAMICIN [Suspect]
     Active Substance: INOTUZUMAB OZOGAMICIN
     Indication: B precursor type acute leukaemia
     Dosage: 0.8 MG/M2 ON DAY 1 AND 0.5 MG/M2 ON DAYS 8 AND 15 (TOTAL: 7.825 MG)
     Route: 042
     Dates: start: 20200929, end: 20201201

REACTIONS (8)
  - Lymphocyte count decreased [Recovered/Resolved]
  - White blood cell count decreased [Recovered/Resolved]
  - Myocardial infarction [Recovered/Resolved]
  - Hypoxia [Recovered/Resolved]
  - Cardiac failure [Recovered/Resolved]
  - Hypokalaemia [Recovered/Resolved]
  - Sepsis [Recovered/Resolved]
  - Febrile neutropenia [Recovered/Resolved]

NARRATIVE: CASE EVENT DATE: 20210330
